FAERS Safety Report 8902121 (Version 1)
Quarter: 2012Q4

REPORT INFORMATION
  Report Type: 
  Country: ZA (occurrence: ZA)
  Receive Date: 20121112
  Receipt Date: 20121112
  Transmission Date: 20130627
  Serious: Yes (Other)
  Sender: FDA-Public Use
  Company Number: PHHY2012ZA103943

PATIENT
  Sex: Female

DRUGS (1)
  1. ACLASTA [Suspect]
     Indication: OSTEOPOROSIS
     Dosage: 5 mg/100 ml
     Route: 042
     Dates: start: 20111212

REACTIONS (6)
  - Tooth disorder [Unknown]
  - Eating disorder [Unknown]
  - Arthralgia [Unknown]
  - Dysstasia [Unknown]
  - Gait disturbance [Unknown]
  - Pain in extremity [Unknown]
